FAERS Safety Report 8504348-0 (Version None)
Quarter: 2012Q3

REPORT INFORMATION
  Report Type: 
  Country: None (occurrence: None)
  Receive Date: 20120711
  Receipt Date: 20120703
  Transmission Date: 20120928
  Serious: Yes (Death, Hospitalization, Disabling, Other)
  Sender: FDA-Public Use
  Company Number: US-009507513-2012SP011823

PATIENT

DRUGS (1)
  1. NUVARING [Suspect]
     Indication: MENORRHAGIA
     Dates: start: 20081101, end: 20090313

REACTIONS (24)
  - BRAIN NEOPLASM [None]
  - ROTATOR CUFF SYNDROME [None]
  - RADIUS FRACTURE [None]
  - MYOCARDIAL INFARCTION [None]
  - MENTAL DISORDER [None]
  - TENDONITIS [None]
  - OSTEOARTHRITIS [None]
  - SYNOVIAL CYST [None]
  - EPILEPSY [None]
  - HYPERCOAGULATION [None]
  - MUSCULOSKELETAL PAIN [None]
  - PORTAL VEIN THROMBOSIS [None]
  - FALL [None]
  - SPINAL OSTEOARTHRITIS [None]
  - MACULAR DEGENERATION [None]
  - OVARIAN CYST [None]
  - TRANSIENT ISCHAEMIC ATTACK [None]
  - MIGRAINE [None]
  - JOINT DISLOCATION [None]
  - SPINAL COLUMN STENOSIS [None]
  - ANEURYSM [None]
  - OFF LABEL USE [None]
  - INTERVERTEBRAL DISC DEGENERATION [None]
  - CEREBROVASCULAR ACCIDENT [None]
